FAERS Safety Report 7739263-3 (Version None)
Quarter: 2011Q3

REPORT INFORMATION
  Report Type: 
  Country: None (occurrence: None)
  Receive Date: 20110909
  Receipt Date: 20110830
  Transmission Date: 20111222
  Serious: Yes (Life-Threatening)
  Sender: FDA-Public Use
  Company Number: JP-JNJFOC-20110900545

PATIENT
  Age: 64 Year
  Sex: Female

DRUGS (4)
  1. REMICADE [Suspect]
     Dosage: 4 INFUSIONS ON UNSPECIFIED DATES
     Route: 042
  2. REMICADE [Suspect]
     Indication: RHEUMATOID ARTHRITIS
     Dosage: FIRST DOSE OF INFLIXIMAB, RECOMBINANT
     Route: 042
     Dates: start: 20101015
  3. REMICADE [Suspect]
     Dosage: SIXTH DOSE OF INFLIXIMAB, RECOMBINANT
     Route: 042
     Dates: start: 20110412
  4. METHOTREXATE [Suspect]
     Indication: PRODUCT USED FOR UNKNOWN INDICATION
     Route: 048
     Dates: start: 20100125, end: 20110829

REACTIONS (1)
  - SKIN MASS [None]
